FAERS Safety Report 9624466 (Version 1)
Quarter: 2013Q4

REPORT INFORMATION
  Report Type: Spontaneous
  Country: US (occurrence: US)
  Receive Date: 20131015
  Receipt Date: 20131015
  Transmission Date: 20140711
  Serious: Yes (Death)
  Sender: FDA-Public Use
  Company Number: US-JNJFOC-20131005527

PATIENT
  Age: 10 Decade
  Sex: Male

DRUGS (2)
  1. ZYTIGA [Suspect]
     Indication: PROSTATE CANCER
     Dosage: 250MG X 4
     Route: 048
  2. PREDNISONE [Concomitant]
     Indication: PROSTATE CANCER
     Route: 048

REACTIONS (3)
  - Pneumonia aspiration [Fatal]
  - Death [Fatal]
  - Dysphagia [Unknown]
